FAERS Safety Report 26027311 (Version 1)
Quarter: 2025Q4

REPORT INFORMATION
  Report Type: Spontaneous
  Country: JP (occurrence: JP)
  Receive Date: 20251111
  Receipt Date: 20251111
  Transmission Date: 20260117
  Serious: Yes (Other)
  Sender: REGENERON
  Company Number: JP-BAYER-2025A148389

PATIENT
  Age: 76 Year
  Sex: Female

DRUGS (1)
  1. EYLEA HD [Suspect]
     Active Substance: AFLIBERCEPT
     Indication: Retinal neovascularisation
     Dosage: SOLUTION FOR INJECTION, 114.3 MG/ML

REACTIONS (1)
  - Hyphaema [Unknown]

NARRATIVE: CASE EVENT DATE: 20250501
